FAERS Safety Report 22042096 (Version 2)
Quarter: 2023Q1

REPORT INFORMATION
  Report Type: Spontaneous
  Country: US (occurrence: US)
  Receive Date: 20230227
  Receipt Date: 20230323
  Transmission Date: 20230418
  Serious: No
  Sender: FDA-Public Use
  Company Number: US-JNJFOC-20230242400

PATIENT
  Sex: Female
  Weight: 47.670 kg

DRUGS (1)
  1. TREMFYA [Suspect]
     Active Substance: GUSELKUMAB
     Indication: Psoriasis
     Route: 058

REACTIONS (4)
  - Device defective [Unknown]
  - Off label use [Unknown]
  - Wrong technique in device usage process [Unknown]
  - Underdose [Unknown]
